FAERS Safety Report 5038153-7 (Version None)
Quarter: 2006Q2

REPORT INFORMATION
  Report Type: 
  Country: None (occurrence: None)
  Receive Date: 20060626
  Receipt Date: 20060616
  Transmission Date: 20061013
  Serious: No
  Sender: FDA-Public Use
  Company Number: TPA2003A01732

PATIENT
  Age: 74 Year
  Sex: Female

DRUGS (10)
  1. ACTOS [Suspect]
     Indication: DIABETES MELLITUS NON-INSULIN-DEPENDENT
     Dosage: PER ORAL
     Route: 048
     Dates: start: 20020801, end: 20030603
  2. GLYBURIDE [Concomitant]
  3. GLUCOPHAGE [Concomitant]
  4. LIPITOR [Concomitant]
  5. UNKNOWN HEART PILLS (CARDIAC THERAPY) [Concomitant]
  6. UNKNOWN BP PILLS (ANTIHYPERTENSIVES) [Concomitant]
  7. ISOSORBIDE [Concomitant]
  8. LASIX [Concomitant]
  9. SYNTHROID [Concomitant]
  10. PRINIVIL [Concomitant]

REACTIONS (6)
  - BLOOD GLUCOSE INCREASED [None]
  - DIABETIC RETINAL OEDEMA [None]
  - PITTING OEDEMA [None]
  - RETINAL EXUDATES [None]
  - VISUAL ACUITY REDUCED [None]
  - WEIGHT INCREASED [None]
